FAERS Safety Report 4897405-1 (Version None)
Quarter: 2006Q1

REPORT INFORMATION
  Report Type: 
  Country: None (occurrence: None)
  Receive Date: 20060130
  Receipt Date: 20060130
  Transmission Date: 20060701
  Serious: Yes (Hospitalization)
  Sender: FDA-Public Use
  Company Number: None

PATIENT
  Age: 65 Year
  Sex: Male

DRUGS (15)
  1. GOODY'S POWDERS [Suspect]
     Indication: MUSCULOSKELETAL PAIN
     Dosage: 1-2 PACKETS/DAY
  2. ENALAPRIL [Concomitant]
  3. AMOXICILLIN [Concomitant]
  4. CLARITHROMYCIN [Concomitant]
  5. OMEPRAZOLE [Concomitant]
  6. LORATADINE [Concomitant]
  7. CIPROFLOXACIN [Concomitant]
  8. LORAZEPAM [Concomitant]
  9. METOCLOPRAMIDE [Concomitant]
  10. MULTI-VITAMIN [Concomitant]
  11. ALLOPURINOL [Concomitant]
  12. DIGOXIN [Concomitant]
  13. FUROSEMIDE [Concomitant]
  14. POTASSIUM CHLORIDE SUPPLEMENTS [Concomitant]
  15. METOPROLOL [Concomitant]

REACTIONS (3)
  - DIZZINESS [None]
  - HAEMATOCRIT DECREASED [None]
  - MELAENA [None]
